FAERS Safety Report 10220018 (Version 2)
Quarter: 2014Q2

REPORT INFORMATION
  Report Type: Report from Study
  Country: FR (occurrence: FR)
  Receive Date: 20140605
  Receipt Date: 20140605
  Transmission Date: 20141212
  Serious: Yes (Hospitalization)
  Sender: FDA-Public Use
  Company Number: FR-DSJP-DSM-2013-00679

PATIENT
  Sex: 0

DRUGS (3)
  1. ALTEIS [Suspect]
     Indication: HYPERTENSION
     Dosage: 40 MG, QD
     Route: 048
     Dates: start: 20101215, end: 20130627
  2. PARACETAMOL [Concomitant]
     Indication: PAIN
     Dosage: AS NEEDED
  3. ANTADYS [Concomitant]
     Indication: PAIN
     Dosage: AS NEEDED

REACTIONS (7)
  - Colitis microscopic [Recovered/Resolved]
  - Hypokalaemia [Recovered/Resolved]
  - Gastrointestinal disorder [Recovered/Resolved]
  - Diarrhoea [Recovered/Resolved]
  - Vomiting [Recovered/Resolved]
  - Weight decreased [Recovered/Resolved]
  - Intestinal villi atrophy [Recovered/Resolved]
